FAERS Safety Report 26205200 (Version 1)
Quarter: 2025Q4

REPORT INFORMATION
  Report Type: Spontaneous
  Country: CN (occurrence: CN)
  Receive Date: 20251228
  Receipt Date: 20251228
  Transmission Date: 20260118
  Serious: Yes (Hospitalization)
  Sender: COHERUS
  Company Number: CN-SHANGHAI JUNSHI BIOSCIENCES CO., LTD.-CN2025016980

PATIENT

DRUGS (6)
  1. TORIPALIMAB [Suspect]
     Active Substance: TORIPALIMAB
     Indication: Lung neoplasm malignant
     Dosage: 240 MG, CYCLE 1
     Route: 041
     Dates: start: 20250807, end: 20250807
  2. TORIPALIMAB [Suspect]
     Active Substance: TORIPALIMAB
     Dosage: 240 MG, CYCLE 2
     Route: 041
     Dates: start: 20250828, end: 20250828
  3. PACLITAXEL [Concomitant]
     Active Substance: PACLITAXEL
     Indication: Lung neoplasm malignant
     Dosage: 400 MG, CYCLE 1
     Route: 041
     Dates: start: 20250807, end: 20250807
  4. PACLITAXEL [Concomitant]
     Active Substance: PACLITAXEL
     Dosage: 400 MG, CYCLE 2
     Route: 041
     Dates: start: 20250828, end: 20250828
  5. CARBOPLATIN [Concomitant]
     Active Substance: CARBOPLATIN
     Indication: Lung neoplasm malignant
     Dosage: 600 MG, CYCLE 1
     Route: 041
     Dates: start: 20250807, end: 20250807
  6. CARBOPLATIN [Concomitant]
     Active Substance: CARBOPLATIN
     Dosage: 600 MG, CYCLE 2
     Route: 041
     Dates: start: 20250828, end: 20250828

REACTIONS (1)
  - Myocardial infarction [Recovering/Resolving]

NARRATIVE: CASE EVENT DATE: 20250919
